FAERS Safety Report 7350949-5 (Version None)
Quarter: 2011Q1

REPORT INFORMATION
  Report Type: 
  Country: None (occurrence: None)
  Receive Date: 20110314
  Receipt Date: 20110312
  Transmission Date: 20110831
  Serious: No
  Sender: FDA-Public Use
  Company Number: US-PFIZER INC-2011054758

PATIENT
  Sex: Male
  Weight: 65.76 kg

DRUGS (2)
  1. PRISTIQ [Suspect]
     Indication: ANXIETY
     Dosage: UNK
     Route: 048
     Dates: start: 20100801
  2. PRISTIQ [Suspect]
     Indication: STRESS

REACTIONS (1)
  - RASH [None]
